FAERS Safety Report 6252170-0 (Version None)
Quarter: 2009Q2

REPORT INFORMATION
  Report Type: 
  Country: None (occurrence: None)
  Receive Date: 20090629
  Receipt Date: 20090618
  Transmission Date: 20091009
  Serious: Yes (Other)
  Sender: FDA-Public Use
  Company Number: 1-18868753

PATIENT
  Age: 42 Year
  Sex: Male

DRUGS (1)
  1. IBURPROFEN         (UNKNOWN MANUFACTURER) [Suspect]

REACTIONS (1)
  - COLITIS [None]
